FAERS Safety Report 8261984-7 (Version None)
Quarter: 2012Q2

REPORT INFORMATION
  Report Type: 
  Country: None (occurrence: None)
  Receive Date: 20120405
  Receipt Date: 20120402
  Transmission Date: 20120825
  Serious: Yes (Other)
  Sender: FDA-Public Use
  Company Number: US-PFIZER INC-2012083654

PATIENT
  Sex: Female

DRUGS (1)
  1. CHANTIX [Suspect]
     Dosage: UNK
     Dates: start: 20120101

REACTIONS (5)
  - DYSPEPSIA [None]
  - HYPERHIDROSIS [None]
  - ANGINA PECTORIS [None]
  - CHEST PAIN [None]
  - NAUSEA [None]
